FAERS Safety Report 9844674 (Version 1)
Quarter: 2014Q1

REPORT INFORMATION
  Report Type: Spontaneous
  Country: None (occurrence: None)
  Receive Date: 20140122
  Receipt Date: 20140122
  Transmission Date: 20141002
  Serious: Yes (Life-Threatening)
  Sender: FDA-Public Use
  Company Number: 2014P1000239

PATIENT
  Age: 4 Year
  Sex: Female

DRUGS (2)
  1. ZANTAC [Suspect]
     Indication: ABDOMINAL PAIN
     Dates: start: 20140104, end: 20140104
  2. ZOFRAN [Suspect]
     Indication: VOMITING
     Dates: start: 20140104, end: 20140104

REACTIONS (2)
  - Swelling face [None]
  - Hyperhidrosis [None]
